FAERS Safety Report 17627654 (Version 15)
Quarter: 2020Q2

REPORT INFORMATION
  Report Type: Report from Study
  Country: US (occurrence: US)
  Receive Date: 20200405
  Receipt Date: 20200630
  Transmission Date: 20200713
  Serious: Yes (Hospitalization)
  Sender: FDA-Public Use
  Company Number: US-EISAI MEDICAL RESEARCH-EC-2020-072751

PATIENT
  Age: 70 Year
  Sex: Male
  Weight: 89.8 kg

DRUGS (11)
  1. LENVATINIB [Suspect]
     Active Substance: LENVATINIB
     Indication: HEPATOCELLULAR CARCINOMA
     Route: 048
     Dates: start: 20200312
  2. ZOFRAN [Concomitant]
     Active Substance: ONDANSETRON HYDROCHLORIDE
     Dates: start: 20200324, end: 20200324
  3. VITAMIN D (UNSPECIFIED) [Concomitant]
     Active Substance: VITAMIN D NOS
     Dates: start: 20191219, end: 20200317
  4. OXYCODONE [Concomitant]
     Active Substance: OXYCODONE
     Dates: start: 20200106
  5. SODIUM CHLORIDE. [Concomitant]
     Active Substance: SODIUM CHLORIDE
     Route: 041
     Dates: start: 20200324, end: 20200324
  6. OXYCODONE [Concomitant]
     Active Substance: OXYCODONE
     Dates: start: 20200106
  7. HYDROXYUREA. [Concomitant]
     Active Substance: HYDROXYUREA
     Dates: start: 198001
  8. FAMOTIDINE. [Concomitant]
     Active Substance: FAMOTIDINE
     Dates: start: 20200324, end: 20200324
  9. PEMBROLIZUMAB. [Suspect]
     Active Substance: PEMBROLIZUMAB
     Indication: HEPATOCELLULAR CARCINOMA
     Route: 041
     Dates: start: 20200312, end: 20200312
  10. HYDROCHLOROTHIAZIDE PLUS LISINOPRIL [Concomitant]
     Dates: start: 199001
  11. PREGABALIN. [Concomitant]
     Active Substance: PREGABALIN
     Dates: start: 198001

REACTIONS (3)
  - Alanine aminotransferase increased [Not Recovered/Not Resolved]
  - Diarrhoea [Recovered/Resolved]
  - Atrial fibrillation [Recovered/Resolved]

NARRATIVE: CASE EVENT DATE: 20200313
